FAERS Safety Report 7525858-9 (Version None)
Quarter: 2011Q2

REPORT INFORMATION
  Report Type: 
  Country: None (occurrence: None)
  Receive Date: 20110606
  Receipt Date: 20110526
  Transmission Date: 20111010
  Serious: Yes (Hospitalization)
  Sender: FDA-Public Use
  Company Number: A0922091A

PATIENT
  Age: 48 Year
  Sex: Female

DRUGS (2)
  1. LAMICTAL [Suspect]
     Dosage: 400MG PER DAY
     Route: 048
     Dates: start: 20101007, end: 20110406
  2. PLAQUENIL [Suspect]
     Dosage: 200MG TWICE PER DAY
     Route: 048

REACTIONS (1)
  - NEUTROPENIA [None]
